FAERS Safety Report 8092540-1 (Version None)
Quarter: 2012Q1

REPORT INFORMATION
  Report Type: 
  Country: None (occurrence: None)
  Receive Date: 20120128
  Receipt Date: 20110822
  Transmission Date: 20120608
  Serious: No
  Sender: FDA-Public Use
  Company Number: US-ABBOTT-11P-163-0849835-00

PATIENT
  Sex: Female

DRUGS (3)
  1. LISINOPRIL [Concomitant]
     Indication: HYPERTENSION
     Route: 048
  2. HUMIRA [Suspect]
     Indication: CROHN'S DISEASE
     Route: 058
     Dates: start: 20110501
  3. LISINOPRIL [Concomitant]
     Dosage: 1 TAB, BUT 1/2 TAB MORE AS NEEDED WITH HEADACHES
     Route: 048

REACTIONS (2)
  - HEADACHE [None]
  - BLOOD PRESSURE INCREASED [None]
